FAERS Safety Report 15634658 (Version 1)
Quarter: 2018Q4

REPORT INFORMATION
  Report Type: Spontaneous
  Country: US (occurrence: US)
  Receive Date: 20181116
  Receipt Date: 20181116
  Transmission Date: 20190205
  Serious: Yes (Other)
  Sender: FDA-Public Use
  Company Number: None

PATIENT
  Age: 65 Year
  Sex: Female
  Weight: 60.33 kg

DRUGS (17)
  1. ESTRADIOL. [Concomitant]
     Active Substance: ESTRADIOL
  2. ACETAMINOPHEN. [Concomitant]
     Active Substance: ACETAMINOPHEN
  3. D-3 [Concomitant]
     Active Substance: CHOLECALCIFEROL
  4. COQ10 [Concomitant]
     Active Substance: UBIDECARENONE
  5. AZELASTIN [Concomitant]
  6. MONTELUKAST [Concomitant]
     Active Substance: MONTELUKAST SODIUM
  7. BOTOX [Concomitant]
     Active Substance: ONABOTULINUMTOXINA
  8. NARATRIPTIN [Concomitant]
  9. DIGESTIVE ENZYMES [Concomitant]
     Active Substance: UNSPECIFIED INGREDIENT
  10. VITAMIN B12 [Concomitant]
     Active Substance: CYANOCOBALAMIN
  11. AIMOVIG [Suspect]
     Active Substance: ERENUMAB-AOOE
     Indication: MIGRAINE
     Dosage: ?          QUANTITY:1 ML MILLILITRE(S);?
     Route: 058
     Dates: start: 20180831, end: 20181004
  12. ONDANSETRON [Concomitant]
     Active Substance: ONDANSETRON
  13. ALLERGY SHOTS [Concomitant]
     Active Substance: UNSPECIFIED INGREDIENT
  14. GABAPENTIN. [Concomitant]
     Active Substance: GABAPENTIN
  15. PROCHLORPERAZINE. [Concomitant]
     Active Substance: PROCHLORPERAZINE
  16. PROMETRIUM [Concomitant]
     Active Substance: PROGESTERONE
  17. TRIAMCINOLONE [Concomitant]
     Active Substance: TRIAMCINOLONE

REACTIONS (1)
  - Constipation [None]
